FAERS Safety Report 6395674-2 (Version None)
Quarter: 2009Q4

REPORT INFORMATION
  Report Type: 
  Country: None (occurrence: None)
  Receive Date: 20091009
  Receipt Date: 20090928
  Transmission Date: 20100525
  Serious: Yes (Hospitalization, Other)
  Sender: FDA-Public Use
  Company Number: PHEH2009US12392

PATIENT
  Sex: Female

DRUGS (1)
  1. RECLAST [Suspect]
     Indication: OSTEOPOROSIS
     Dosage: 5MG, YEARLY
     Dates: start: 20090915, end: 20090915

REACTIONS (3)
  - ASTHENIA [None]
  - PAIN [None]
  - URINARY INCONTINENCE [None]
